FAERS Safety Report 9187871 (Version 1)
Quarter: 2013Q1

REPORT INFORMATION
  Report Type: Spontaneous
  Country: US (occurrence: US)
  Receive Date: 20130325
  Receipt Date: 20130325
  Transmission Date: 20140127
  Serious: No
  Sender: FDA-Public Use
  Company Number: US-MYLANLABS-2012S1014649

PATIENT
  Age: 40 Year
  Sex: Male

DRUGS (1)
  1. FENTANYL TRANSDERMAL SYSTEM [Suspect]
     Indication: PAIN
     Dosage: QOD
     Route: 062
     Dates: start: 20120710, end: 20120714

REACTIONS (7)
  - Drug ineffective [Recovered/Resolved]
  - Pain [Recovered/Resolved]
  - Application site rash [Recovered/Resolved]
  - Application site pruritus [Recovered/Resolved]
  - Insomnia [Recovered/Resolved]
  - Reaction to drug excipients [Recovered/Resolved]
  - Hypersensitivity [Recovered/Resolved]
